FAERS Safety Report 24736596 (Version 1)
Quarter: 2024Q4

REPORT INFORMATION
  Report Type: Spontaneous
  Country: US (occurrence: US)
  Receive Date: 20241216
  Receipt Date: 20241216
  Transmission Date: 20250115
  Serious: No
  Sender: JOHNSON AND JOHNSON
  Company Number: US-JNJFOC-20241162815

PATIENT
  Age: 57 Year
  Sex: Female
  Weight: 86 kg

DRUGS (1)
  1. LAZCLUZE [Suspect]
     Active Substance: LAZERTINIB
     Indication: Lung carcinoma cell type unspecified stage 0
     Route: 048
     Dates: start: 20240926

REACTIONS (9)
  - Weight increased [Not Recovered/Not Resolved]
  - Fatigue [Not Recovered/Not Resolved]
  - Rash [Not Recovered/Not Resolved]
  - Nail infection [Not Recovered/Not Resolved]
  - Nail discolouration [Not Recovered/Not Resolved]
  - Dry skin [Not Recovered/Not Resolved]
  - Epistaxis [Not Recovered/Not Resolved]
  - Blood magnesium decreased [Not Recovered/Not Resolved]
  - Headache [Not Recovered/Not Resolved]
